FAERS Safety Report 6020130-0 (Version None)
Quarter: 2008Q4

REPORT INFORMATION
  Report Type: 
  Country: None (occurrence: None)
  Receive Date: 20081226
  Receipt Date: 20081217
  Transmission Date: 20090506
  Serious: Yes (Hospitalization)
  Sender: FDA-Public Use
  Company Number: US-BIOGENIDEC-2008BI032377

PATIENT
  Age: 20 Year
  Sex: Female

DRUGS (5)
  1. TYSABRI [Suspect]
     Indication: CROHN'S DISEASE
     Route: 042
     Dates: start: 20081031, end: 20081031
  2. CIMZIA [Concomitant]
     Indication: DRUG USE FOR UNKNOWN INDICATION
     Route: 058
  3. XIFAXAN [Concomitant]
     Indication: DRUG USE FOR UNKNOWN INDICATION
     Route: 048
  4. IMODIUM [Concomitant]
     Indication: DRUG USE FOR UNKNOWN INDICATION
     Route: 048
  5. DEPO-PROVERA [Concomitant]
     Indication: DRUG USE FOR UNKNOWN INDICATION
     Route: 030

REACTIONS (4)
  - COLITIS [None]
  - DRUG INEFFECTIVE [None]
  - GASTROINTESTINAL DYSPLASIA [None]
  - HIATUS HERNIA [None]
